FAERS Safety Report 6958155-0 (Version None)
Quarter: 2010Q3

REPORT INFORMATION
  Report Type: 
  Country: None (occurrence: None)
  Receive Date: 20100831
  Receipt Date: 20100819
  Transmission Date: 20110219
  Serious: Yes (Hospitalization, Disabling)
  Sender: FDA-Public Use
  Company Number: CH-PFIZER INC-2010104343

PATIENT
  Age: 31 Year
  Sex: Female
  Weight: 90 kg

DRUGS (11)
  1. LYRICA [Suspect]
     Indication: PAIN
     Dosage: 50 MG, 3X/DAY
     Route: 048
  2. HUMIRA [Suspect]
     Indication: ANKYLOSING SPONDYLITIS
     Dosage: 40 MG, CYCLIC
     Route: 058
     Dates: start: 20100629, end: 20100720
  3. FLUCTINE [Suspect]
     Indication: AFFECTIVE DISORDER
     Dosage: 20 MG, 1X/DAY
     Route: 048
     Dates: start: 20100401
  4. FLUCTINE [Suspect]
     Dosage: 30 MG, 1X/DAY
     Route: 048
     Dates: end: 20100614
  5. FLUCTINE [Suspect]
     Dosage: 40 MG, 1X/DAY
     Route: 048
     Dates: start: 20100615
  6. ACETAMINOPHEN [Concomitant]
     Indication: PAIN
     Dosage: 1 G, AS NEEDED
     Route: 048
  7. NAPROXEN [Concomitant]
     Indication: PAIN
     Dosage: 500 MG, 2X/DAY
     Route: 048
  8. OXYCONTIN [Concomitant]
     Indication: PAIN
     Dosage: 20 MG, 2X/DAY
     Route: 048
  9. OXYCODONE HCL [Concomitant]
     Indication: PAIN
     Dosage: 5 MG, AS NEEDED
     Route: 048
  10. VALIUM [Concomitant]
     Indication: MUSCLE CONTRACTURE
     Dosage: 5 MG, 1X/DAY
     Route: 048
  11. LORAZEPAM [Concomitant]
     Indication: ANXIETY DISORDER
     Dosage: 1 MG, 1X/DAY
     Route: 048

REACTIONS (4)
  - CHOREOATHETOSIS [None]
  - DEPRESSION [None]
  - PSEUDOPARALYSIS [None]
  - TREMOR [None]
